FAERS Safety Report 6181030-9 (Version None)
Quarter: 2009Q2

REPORT INFORMATION
  Report Type: 
  Country: None (occurrence: None)
  Receive Date: 20090504
  Receipt Date: 20090504
  Transmission Date: 20091009
  Serious: Yes (Disabling, Other)
  Sender: FDA-Public Use
  Company Number: None

PATIENT
  Age: 37 Year
  Sex: Female
  Weight: 68.9467 kg

DRUGS (1)
  1. MIRENA [Suspect]
     Indication: CONTRACEPTION
     Dates: start: 20090430, end: 20090501

REACTIONS (7)
  - DIZZINESS [None]
  - FEELING ABNORMAL [None]
  - INSOMNIA [None]
  - IUCD COMPLICATION [None]
  - MOOD SWINGS [None]
  - PAIN [None]
  - PAIN IN EXTREMITY [None]
